FAERS Safety Report 10051707 (Version 1)
Quarter: 2014Q2

REPORT INFORMATION
  Report Type: Spontaneous
  Country: US (occurrence: US)
  Receive Date: 20140401
  Receipt Date: 20140401
  Transmission Date: 20141212
  Serious: Yes (Hospitalization, Other)
  Sender: FDA-Public Use
  Company Number: US-ABBVIE-14P-163-1216380-00

PATIENT
  Age: 72 Year
  Sex: Female
  Weight: 42.68 kg

DRUGS (6)
  1. HUMIRA [Suspect]
     Indication: RHEUMATOID ARTHRITIS
     Route: 058
  2. HUMIRA [Suspect]
     Indication: CROHN^S DISEASE
     Route: 058
     Dates: start: 201311
  3. NEXIUM [Concomitant]
     Indication: GASTROOESOPHAGEAL REFLUX DISEASE
  4. CYMBALTA [Concomitant]
     Indication: RHEUMATOID ARTHRITIS
  5. GABAPENTIN [Concomitant]
     Indication: RHEUMATOID ARTHRITIS
  6. LOMOTIL [Concomitant]
     Indication: CROHN^S DISEASE

REACTIONS (6)
  - Intestinal obstruction [Recovered/Resolved]
  - Injection site pain [Not Recovered/Not Resolved]
  - Crohn^s disease [Not Recovered/Not Resolved]
  - Vomiting [Recovered/Resolved]
  - Diarrhoea [Recovered/Resolved]
  - Weight decreased [Recovered/Resolved]
